FAERS Safety Report 12632706 (Version 2)
Quarter: 2016Q3

REPORT INFORMATION
  Report Type: Spontaneous
  Country: US (occurrence: US)
  Receive Date: 20160808
  Receipt Date: 20160808
  Transmission Date: 20161109
  Serious: No
  Sender: FDA-Public Use
  Company Number: US-BEH-2015056576

PATIENT
  Age: 71 Year
  Sex: Male
  Weight: 133 kg

DRUGS (24)
  1. HIZENTRA [Suspect]
     Active Substance: HUMAN IMMUNOGLOBULIN G
     Route: 058
  2. HIZENTRA [Suspect]
     Active Substance: HUMAN IMMUNOGLOBULIN G
     Indication: IMMUNODEFICIENCY COMMON VARIABLE
     Route: 058
  3. LIDOCAINE. [Concomitant]
     Active Substance: LIDOCAINE
  4. EPIPEN [Concomitant]
     Active Substance: EPINEPHRINE
  5. AMLODIPINE BESYLATE AND BENAZEPRIL HYDROCHLORIDE [Concomitant]
     Active Substance: AMLODIPINE BESYLATE\BENAZEPRIL HYDROCHLORIDE
  6. ACTOS [Concomitant]
     Active Substance: PIOGLITAZONE HYDROCHLORIDE
  7. VITAMIN B12 [Concomitant]
     Active Substance: CYANOCOBALAMIN
  8. VITAMIN E [Concomitant]
     Active Substance: .ALPHA.-TOCOPHEROL
  9. ACETAMINOPHEN. [Concomitant]
     Active Substance: ACETAMINOPHEN
  10. BETOPTIC C [Concomitant]
  11. METFORMIN HYDROCHLORIDE. [Concomitant]
     Active Substance: METFORMIN HYDROCHLORIDE
  12. FISH OIL [Concomitant]
     Active Substance: FISH OIL
  13. HIZENTRA [Suspect]
     Active Substance: HUMAN IMMUNOGLOBULIN G
     Route: 058
  14. ALEVE [Concomitant]
     Active Substance: NAPROXEN SODIUM
  15. HIZENTRA [Suspect]
     Active Substance: HUMAN IMMUNOGLOBULIN G
     Route: 058
  16. GLIPIZIDE ER [Concomitant]
     Active Substance: GLIPIZIDE
  17. DIPHENHYDRAMINE. [Concomitant]
     Active Substance: DIPHENHYDRAMINE
  18. ADVAIR HFA [Concomitant]
     Active Substance: FLUTICASONE PROPIONATE\SALMETEROL XINAFOATE
  19. QVAR [Concomitant]
     Active Substance: BECLOMETHASONE DIPROPIONATE
  20. BENAZEPRIL [Concomitant]
     Active Substance: BENAZEPRIL HYDROCHLORIDE
  21. ASPIRIN EC [Concomitant]
     Active Substance: ASPIRIN
  22. HIZENTRA [Suspect]
     Active Substance: HUMAN IMMUNOGLOBULIN G
     Dosage: START DATE: ??-SEP-2014
     Route: 058
  23. SIMVASTATIN. [Concomitant]
     Active Substance: SIMVASTATIN
  24. VITAMIN C [Concomitant]
     Active Substance: ASCORBIC ACID

REACTIONS (2)
  - Bronchitis [Unknown]
  - Nasopharyngitis [Unknown]

NARRATIVE: CASE EVENT DATE: 20151025
